FAERS Safety Report 25123720 (Version 1)
Quarter: 2025Q1

REPORT INFORMATION
  Report Type: Report from Study
  Country: US (occurrence: US)
  Receive Date: 20250326
  Receipt Date: 20250326
  Transmission Date: 20250409
  Serious: Yes (Hospitalization, Other)
  Sender: ALEXION PHARMACEUTICALS
  Company Number: 202503USA017525US

PATIENT

DRUGS (1)
  1. OLAPARIB [Suspect]
     Active Substance: OLAPARIB
     Indication: Pancreatic carcinoma
     Dosage: 300 MILLIGRAM, BID

REACTIONS (5)
  - Gastrointestinal haemorrhage [Unknown]
  - Illness [Unknown]
  - Condition aggravated [Unknown]
  - Full blood count abnormal [Unknown]
  - Discontinued product administered [Unknown]
